FAERS Safety Report 13679955 (Version 1)
Quarter: 2017Q2

REPORT INFORMATION
  Report Type: Spontaneous
  Country: ZA (occurrence: ZA)
  Receive Date: 20170622
  Receipt Date: 20170622
  Transmission Date: 20170830
  Serious: Yes (Death, Other)
  Sender: FDA-Public Use
  Company Number: ZA-MYLANLABS-2017M1036739

PATIENT

DRUGS (8)
  1. CIPALAT [Suspect]
     Active Substance: NIFEDIPINE
     Indication: HYPERTENSION
     Dosage: UNK
     Route: 048
     Dates: start: 20170612
  2. CIPLA-SIMVASTATIN [Suspect]
     Active Substance: SIMVASTATIN
     Indication: HYPERCHOLESTEROLAEMIA
     Dosage: UNK
     Route: 048
     Dates: start: 20170612
  3. MYLAN METFORMIN 850 MG [Suspect]
     Active Substance: METFORMIN HYDROCHLORIDE
     Indication: DIABETES MELLITUS
     Dosage: UNK
     Route: 048
     Dates: start: 20170612
  4. MYLAN CAPTOPRIL 50 [Suspect]
     Active Substance: CAPTOPRIL
     Indication: HYPERTENSION
     Dosage: UNK
     Route: 048
     Dates: start: 20170612
  5. ELTROXIN [Suspect]
     Active Substance: LEVOTHYROXINE
     Indication: THYROID DISORDER
     Dosage: UNK
     Route: 048
     Dates: start: 20170612
  6. MYLAN INDAPAMIDE 2.5 MG [Suspect]
     Active Substance: INDAPAMIDE
     Indication: DIURETIC THERAPY
     Dosage: UNK
     Route: 048
     Dates: start: 20170612
  7. GLYCOMIN /00145301/ [Suspect]
     Active Substance: GLYBURIDE
     Indication: DIABETES MELLITUS
     Dosage: UNK
     Route: 048
     Dates: start: 20170612
  8. PURESIS [Suspect]
     Active Substance: FUROSEMIDE
     Indication: DIURETIC THERAPY
     Dosage: UNK
     Route: 048
     Dates: start: 20170612

REACTIONS (1)
  - Death [Fatal]

NARRATIVE: CASE EVENT DATE: 20170612
